FAERS Safety Report 9408166 (Version 1)
Quarter: 2013Q3

REPORT INFORMATION
  Report Type: Spontaneous
  Country: US (occurrence: US)
  Receive Date: 20130718
  Receipt Date: 20130718
  Transmission Date: 20140515
  Serious: Yes (Other)
  Sender: FDA-Public Use
  Company Number: US-ELI_LILLY_AND_COMPANY-US201307002793

PATIENT
  Sex: Female

DRUGS (2)
  1. HUMALOG LISPRO [Suspect]
     Dosage: UNK, UNKNOWN
  2. LANTUS [Concomitant]

REACTIONS (2)
  - Renal failure [Recovering/Resolving]
  - Periarthritis [Unknown]
